FAERS Safety Report 9767986 (Version 1)
Quarter: 2013Q4

REPORT INFORMATION
  Report Type: Spontaneous
  Country: US (occurrence: None)
  Receive Date: 20131217
  Receipt Date: 20131217
  Transmission Date: 20140711
  Serious: Yes (Other)
  Sender: FDA-Public Use
  Company Number: 083718

PATIENT
  Age: 40 Year
  Sex: Female
  Weight: 84 kg

DRUGS (2)
  1. CIMZIA [Suspect]
     Indication: CROHN^S DISEASE
     Dosage: (UNKNOWN DOSE)
  2. HUMIRA [Suspect]
     Indication: CROHN^S DISEASE
     Dosage: (40 MG 1X/2 WEEKS), (40 MG 1X/2 WEEKS)

REACTIONS (2)
  - Colectomy [None]
  - Anal fistula [None]
